FAERS Safety Report 14246198 (Version 1)
Quarter: 2017Q4

REPORT INFORMATION
  Report Type: Spontaneous
  Country: JP (occurrence: JP)
  Receive Date: 20171204
  Receipt Date: 20171204
  Transmission Date: 20180321
  Serious: Yes (Hospitalization)
  Sender: FDA-Public Use
  Company Number: JP-ALEMBIC PHARMACUETICALS LIMITED-2017SCAL000953

PATIENT

DRUGS (1)
  1. LITHIUM CARBONATE. [Suspect]
     Active Substance: LITHIUM CARBONATE
     Indication: BIPOLAR DISORDER
     Dosage: UNK

REACTIONS (6)
  - Tremor [Recovering/Resolving]
  - Dysarthria [Recovering/Resolving]
  - Blood creatinine increased [Unknown]
  - Toxicity to various agents [Recovering/Resolving]
  - Antipsychotic drug level increased [Unknown]
  - Gait disturbance [Recovering/Resolving]
